FAERS Safety Report 21566488 (Version 3)
Quarter: 2022Q4

REPORT INFORMATION
  Report Type: Spontaneous
  Country: AT (occurrence: AT)
  Receive Date: 20221108
  Receipt Date: 20221124
  Transmission Date: 20230113
  Serious: Yes (Other)
  Sender: FDA-Public Use
  Company Number: AT-MLMSERVICE-20221020-3874458-1

PATIENT
  Age: 31 Year
  Sex: Female
  Weight: 77 kg

DRUGS (4)
  1. CLARITHROMYCIN [Suspect]
     Active Substance: CLARITHROMYCIN
     Indication: Mycobacterial infection
     Route: 048
  2. ETHAMBUTOL [Suspect]
     Active Substance: ETHAMBUTOL HYDROCHLORIDE
     Indication: Mycobacterial infection
     Route: 048
  3. RIFAMPIN [Suspect]
     Active Substance: RIFAMPIN
     Indication: Mycobacterial infection
     Route: 048
  4. PREDNISOLONE [Concomitant]
     Active Substance: PREDNISOLONE
     Indication: Sarcoidosis
     Route: 065

REACTIONS (1)
  - Erythema multiforme [Recovered/Resolved]
